FAERS Safety Report 6685077-5 (Version None)
Quarter: 2010Q2

REPORT INFORMATION
  Report Type: 
  Country: None (occurrence: None)
  Receive Date: 20100416
  Receipt Date: 20100412
  Transmission Date: 20101027
  Serious: Yes (Other)
  Sender: FDA-Public Use
  Company Number: B0635368A

PATIENT
  Age: 20 Year
  Sex: Female
  Weight: 95 kg

DRUGS (4)
  1. COMBIVIR [Suspect]
     Indication: PROPHYLAXIS
     Dosage: 2U PER DAY
     Route: 048
     Dates: start: 20090819, end: 20090911
  2. COMBIVIR [Suspect]
  3. KALETRA [Suspect]
     Dosage: 2U PER DAY
  4. KALETRA [Suspect]
     Indication: PROPHYLAXIS
     Dosage: 4U PER DAY
     Route: 048
     Dates: start: 20090819, end: 20090911

REACTIONS (2)
  - INCORRECT DOSE ADMINISTERED [None]
  - INTRA-UTERINE DEATH [None]
